FAERS Safety Report 4662344-8 (Version None)
Quarter: 2005Q2

REPORT INFORMATION
  Report Type: 
  Country: None (occurrence: None)
  Receive Date: 20050516
  Receipt Date: 20050505
  Transmission Date: 20051028
  Serious: Yes (Life-Threatening)
  Sender: FDA-Public Use
  Company Number: US-JNJFOC-20050200599

PATIENT
  Sex: Female
  Weight: 76.2 kg

DRUGS (2)
  1. TYLENOL (CAPLET) [Suspect]
  2. TYLENOL (CAPLET) [Suspect]
     Indication: PAIN

REACTIONS (4)
  - AMNESIA [None]
  - ASTHENIA [None]
  - HYPERHIDROSIS [None]
  - TACHYCARDIA [None]
